FAERS Safety Report 5931009-4 (Version None)
Quarter: 2008Q4

REPORT INFORMATION
  Report Type: 
  Country: None (occurrence: None)
  Receive Date: 20081022
  Receipt Date: 20081010
  Transmission Date: 20090506
  Serious: Yes (Hospitalization)
  Sender: FDA-Public Use
  Company Number: 1-16743628

PATIENT
  Age: 34 Year
  Sex: Male

DRUGS (4)
  1. MINOCYCLINE HCL [Suspect]
     Indication: PSEUDOMONAS INFECTION
  2. CLARITHROMYCIN [Concomitant]
  3. NEBULIZED TOBRAMYCIN [Concomitant]
  4. SUBCUTANEOUS INTERFERON GAMMA [Concomitant]

REACTIONS (8)
  - CLOSTRIDIUM DIFFICILE COLITIS [None]
  - CONDITION AGGRAVATED [None]
  - DEHYDRATION [None]
  - FAECAL VOLUME INCREASED [None]
  - HYPOTENSION [None]
  - PSEUDOMEMBRANOUS COLITIS [None]
  - RESPIRATORY DISORDER [None]
  - TACHYCARDIA [None]
